FAERS Safety Report 4836959-8 (Version None)
Quarter: 2005Q4

REPORT INFORMATION
  Report Type: 
  Country: None (occurrence: None)
  Receive Date: 20051121
  Receipt Date: 20051110
  Transmission Date: 20060501
  Serious: Yes (Hospitalization, Other)
  Sender: FDA-Public Use
  Company Number: BR-2005-023577

PATIENT
  Age: 24 Year
  Sex: Female

DRUGS (2)
  1. YASMIN [Suspect]
     Indication: ORAL CONTRACEPTION
     Dosage: 1 TAB(S), ORAL
     Route: 048
     Dates: start: 20050601, end: 20051001
  2. SERENUS (PASSIFLORA INCARNATA EXTRACT) [Concomitant]

REACTIONS (6)
  - DIPLOPIA [None]
  - DIZZINESS [None]
  - HEADACHE [None]
  - NERVOUS SYSTEM DISORDER [None]
  - NUCLEAR MAGNETIC RESONANCE IMAGING ABNORMAL [None]
  - WEIGHT DECREASED [None]
